FAERS Safety Report 6503774-9 (Version None)
Quarter: 2009Q4

REPORT INFORMATION
  Report Type: 
  Country: None (occurrence: None)
  Receive Date: 20091201
  Receipt Date: 20090916
  Transmission Date: 20100525
  Serious: Yes (Hospitalization, Other)
  Sender: FDA-Public Use
  Company Number: 2009SP025602

PATIENT
  Age: 27 Year
  Sex: Female

DRUGS (2)
  1. MELIANE (FEMODENE) [Suspect]
  2. NUVARING [Suspect]
     Dosage: ; VAG
     Route: 067

REACTIONS (1)
  - PULMONARY EMBOLISM [None]
